FAERS Safety Report 25847085 (Version 1)
Quarter: 2025Q3

REPORT INFORMATION
  Report Type: Spontaneous
  Country: US (occurrence: None)
  Receive Date: 20250923
  Receipt Date: 20250923
  Transmission Date: 20251020
  Serious: Yes (Hospitalization)
  Sender: FDA-CTU
  Company Number: None

PATIENT
  Sex: Female

DRUGS (2)
  1. EVEROLIMUS [Suspect]
     Active Substance: EVEROLIMUS
     Indication: Endometrial cancer
     Dosage: 10 MG DAILY ORAL
     Route: 048
     Dates: start: 20240520
  2. LETROZOLE [Suspect]
     Active Substance: LETROZOLE
     Indication: Endometrial cancer
     Dosage: 2.5 MG DAILY ORAL ?
     Route: 048
     Dates: start: 20240516

REACTIONS (2)
  - Intestinal obstruction [None]
  - Cardiac disorder [None]
